FAERS Safety Report 23456963 (Version 2)
Quarter: 2025Q1

REPORT INFORMATION
  Report Type: Spontaneous
  Country: JP (occurrence: JP)
  Receive Date: 20240130
  Receipt Date: 20250326
  Transmission Date: 20250409
  Serious: Yes (Other)
  Sender: TEVA
  Company Number: JP-TEVA-VS-3149359

PATIENT
  Sex: Male

DRUGS (1)
  1. HYDROCORTISONE [Suspect]
     Active Substance: HYDROCORTISONE
     Indication: Hypopituitarism
     Route: 065

REACTIONS (3)
  - Steroid diabetes [Unknown]
  - Dacryocanaliculitis [Recovered/Resolved]
  - Aspergillus infection [Recovered/Resolved]
